FAERS Safety Report 21672989 (Version 1)
Quarter: 2022Q4

REPORT INFORMATION
  Report Type: Spontaneous
  Country: US (occurrence: US)
  Receive Date: 20221202
  Receipt Date: 20221202
  Transmission Date: 20230112
  Serious: Yes (Hospitalization)
  Sender: FDA-Public Use
  Company Number: US-JNJFOC-20221151846

PATIENT
  Age: 76 Year
  Sex: Male
  Weight: 65 kg

DRUGS (8)
  1. DARATUMUMAB [Suspect]
     Active Substance: DARATUMUMAB
     Indication: Plasma cell myeloma refractory
     Dosage: CYCLE 1 DAY1
     Route: 058
     Dates: start: 20220912, end: 20220912
  2. DARATUMUMAB [Suspect]
     Active Substance: DARATUMUMAB
     Dosage: CYCLE 1 DAY8
     Route: 058
     Dates: start: 20220919, end: 20220919
  3. DARATUMUMAB [Suspect]
     Active Substance: DARATUMUMAB
     Dosage: CYCLE 2 DAY1
     Route: 058
     Dates: start: 20221013, end: 20221013
  4. DEXAMETHASONE [Suspect]
     Active Substance: DEXAMETHASONE
     Indication: Plasma cell myeloma refractory
     Dosage: CYCLE 1 DAY 1
     Route: 048
     Dates: start: 20220912, end: 20220912
  5. DEXAMETHASONE [Suspect]
     Active Substance: DEXAMETHASONE
     Dosage: CYCLE 1 DAY 8
     Route: 048
     Dates: start: 20220919, end: 20220919
  6. DEXAMETHASONE [Suspect]
     Active Substance: DEXAMETHASONE
     Dosage: CYCLE 2 DAY 1
     Route: 048
     Dates: start: 20221013, end: 20221013
  7. POMALIDOMIDE [Suspect]
     Active Substance: POMALIDOMIDE
     Indication: Plasma cell myeloma refractory
     Dosage: DAY1-21, CYCLE 1
     Route: 048
     Dates: start: 20220912, end: 20220925
  8. POMALIDOMIDE [Suspect]
     Active Substance: POMALIDOMIDE
     Dosage: DAY1-21, CYCLE 2
     Route: 048
     Dates: start: 20221013

REACTIONS (1)
  - Abdominal pain [Recovered/Resolved]

NARRATIVE: CASE EVENT DATE: 20221025
